FAERS Safety Report 5015941-4 (Version None)
Quarter: 2006Q2

REPORT INFORMATION
  Report Type: 
  Country: None (occurrence: None)
  Receive Date: 20060426
  Receipt Date: 20060207
  Transmission Date: 20061013
  Serious: Yes (Hospitalization)
  Sender: FDA-Public Use
  Company Number: US162889

PATIENT
  Age: 71 Year
  Sex: Male

DRUGS (15)
  1. SENSIPAR [Suspect]
     Indication: HYPERPARATHYROIDISM SECONDARY
     Dosage: 60 MG, 1 IN 1 DAYS, PO
     Route: 048
     Dates: start: 20050511, end: 20051218
  2. PARICALCITOL [Concomitant]
  3. SODIUM POLYSTYRENE SULFONATE [Concomitant]
  4. NEPHRO-CAPS [Concomitant]
  5. ATORVASTATIN CALCIUM [Concomitant]
  6. WARFARIN SODIUM [Concomitant]
  7. AMITRIPTYLINE HYDROCHLORIDE [Concomitant]
  8. LEVOTHYROXINE SODIUM [Concomitant]
  9. LORATADINE [Concomitant]
  10. LAMOTRIGINE [Concomitant]
  11. ALPRAZOLAM [Concomitant]
  12. FLUTICASONE/SALMETEROL [Concomitant]
  13. METOPROLOL TARTRATE [Concomitant]
  14. DIGOXIN [Concomitant]
  15. ACETYLSALICYLIC ACID SRT [Concomitant]

REACTIONS (1)
  - HYPOCALCAEMIA [None]
